FAERS Safety Report 8216491-4 (Version None)
Quarter: 2012Q1

REPORT INFORMATION
  Report Type: 
  Country: None (occurrence: None)
  Receive Date: 20120313
  Receipt Date: 20120229
  Transmission Date: 20120608
  Serious: Yes (Hospitalization)
  Sender: FDA-Public Use
  Company Number: TCI2012A01018

PATIENT
  Age: 6 Decade
  Sex: Male

DRUGS (2)
  1. ALEVIATIN (PHENYTOIN) [Concomitant]
  2. LANSOPRAZOLE [Suspect]
     Indication: DYSPEPSIA
     Dosage: 15 MG (15 MG, 1 IN 1 D), ORAL
     Route: 048
     Dates: start: 20110901, end: 20120209

REACTIONS (2)
  - DRUG LEVEL INCREASED [None]
  - POTENTIATING DRUG INTERACTION [None]
